FAERS Safety Report 4538579-1 (Version None)
Quarter: 2004Q4

REPORT INFORMATION
  Report Type: 
  Country: None (occurrence: None)
  Receive Date: 20041222
  Receipt Date: 20041214
  Transmission Date: 20050328
  Serious: Yes (Hospitalization, Other)
  Sender: FDA-Public Use
  Company Number: HQWYE116517SEP04

PATIENT
  Age: 33 Year
  Sex: Female

DRUGS (6)
  1. RAPAMUNE (SIROLIMUS, TABLET) LOT NO. : 2003P1123 [Suspect]
     Indication: PROPHYLAXIS AGAINST TRANSPLANT REJECTION
     Dosage: 1 MG 1X PER 1 DAY, ORAL
     Route: 048
     Dates: start: 20030926
  2. AZATHIOPINE (AZATHIOPRINE) [Concomitant]
  3. PREDNISONE [Concomitant]
  4. ENALAPRIL (ENALAPRIL) [Concomitant]
  5. DILTIAZEM [Concomitant]
  6. PRAVACHOL [Concomitant]

REACTIONS (6)
  - BLOOD CREATININE INCREASED [None]
  - DEHYDRATION [None]
  - DIARRHOEA [None]
  - HYPOVOLAEMIC SHOCK [None]
  - NAUSEA [None]
  - VOMITING [None]
